FAERS Safety Report 7368633-0 (Version None)
Quarter: 2011Q1

REPORT INFORMATION
  Report Type: 
  Country: None (occurrence: None)
  Receive Date: 20110323
  Receipt Date: 20110314
  Transmission Date: 20110831
  Serious: Yes (Hospitalization, Other)
  Sender: FDA-Public Use
  Company Number: DE-NOVOPROD-324170

PATIENT
  Sex: Male

DRUGS (6)
  1. DIOVAN [Concomitant]
  2. VICTOZA [Suspect]
     Indication: TYPE 2 DIABETES MELLITUS
     Dosage: 0.6 MG, QD
  3. VICTOZA [Suspect]
     Dosage: 1.2 MG, QD
  4. SIMVA [Concomitant]
  5. CONCOR 5 PLUS [Concomitant]
  6. JANUMET [Concomitant]
     Dosage: UNK

REACTIONS (2)
  - BLOOD GLUCOSE INCREASED [None]
  - PANCREATITIS [None]
